FAERS Safety Report 5752305-X (Version None)
Quarter: 2008Q2

REPORT INFORMATION
  Report Type: 
  Country: None (occurrence: None)
  Receive Date: 20080529
  Receipt Date: 20080528
  Transmission Date: 20081010
  Serious: Yes (Other)
  Sender: FDA-Public Use
  Company Number: A0706353A

PATIENT
  Age: 46 Year
  Sex: Female

DRUGS (4)
  1. ALLI [Suspect]
     Dates: start: 20071101
  2. AMPICILLIN [Suspect]
  3. RIFAMPIN [Concomitant]
  4. AVELOX [Concomitant]

REACTIONS (4)
  - ABDOMINAL PAIN UPPER [None]
  - ERYTHEMA [None]
  - FOOD CRAVING [None]
  - STAPHYLOCOCCAL INFECTION [None]
